FAERS Safety Report 9745658 (Version 1)
Quarter: 2013Q4

REPORT INFORMATION
  Report Type: Spontaneous
  Country: IT (occurrence: None)
  Receive Date: 20131204
  Receipt Date: 20131204
  Transmission Date: 20140711
  Serious: No
  Sender: FDA-Public Use
  Company Number: IT-2013-3748

PATIENT
  Age: 54 Year
  Sex: Male
  Weight: 70 kg

DRUGS (7)
  1. NAVELBINE [Suspect]
     Indication: ALVEOLAR SOFT PART SARCOMA
     Dosage: CYCLICAL (1/21)
     Route: 042
     Dates: start: 20130326, end: 20130412
  2. METHOTREXATE (METHOTREXATE SODIUM) [Suspect]
     Indication: ALVEOLAR SOFT PART SARCOMA
     Dosage: CYCLICAL (1/21)
     Route: 042
     Dates: start: 20130326, end: 20130412
  3. ONDANSETRON (ONDANSETRON) [Concomitant]
  4. SOLDESAM (DEXAMETHASONE SODIUM PHOSPHAE) [Concomitant]
  5. RANIDIL (RANITIDINE HYDROCHLORIDE) [Concomitant]
  6. TAPAZOLE (THIAMAZOLE) [Concomitant]
  7. GLIVEC [Suspect]
     Route: 048
     Dates: start: 20010801, end: 20130412

REACTIONS (4)
  - Muscle spasms [None]
  - Abdominal pain [None]
  - Nausea [None]
  - Vomiting [None]
